FAERS Safety Report 9562261 (Version 1)
Quarter: 2013Q1

REPORT INFORMATION
  Report Type: Spontaneous
  Country: US (occurrence: None)
  Receive Date: 20130328
  Receipt Date: 20130328
  Transmission Date: 20140127
  Serious: Yes (Death)
  Sender: FDA-Public Use
  Company Number: 2013-00314

PATIENT
  Age: 57 Year
  Sex: Female

DRUGS (7)
  1. TRAMADOL (UNKNOWN) [Suspect]
     Indication: PRODUCT USED FOR UNKNOWN INDICATION
  2. PAROXETINE (UNKNOWN) [Suspect]
  3. ACETAMINOPHEN/HYDROCODONE [Suspect]
  4. DIPHENHYDRAMINE (UNKNOWN) [Suspect]
  5. HYOSCYAMINE [Suspect]
  6. CYCLOBENZAPRINE (UNKNOWN) [Suspect]
  7. DILTIAZEM [Suspect]

REACTIONS (1)
  - Drug abuse [None]
